FAERS Safety Report 16773273 (Version 1)
Quarter: 2019Q3

REPORT INFORMATION
  Report Type: Spontaneous
  Country: BR (occurrence: BR)
  Receive Date: 20190904
  Receipt Date: 20190904
  Transmission Date: 20191005
  Serious: Yes (Other)
  Sender: FDA-Public Use
  Company Number: BR-GLAXOSMITHKLINE-BR2019157590

PATIENT
  Sex: Male

DRUGS (2)
  1. COMBODART [Suspect]
     Active Substance: DUTASTERIDE\TAMSULOSIN
     Dosage: 2 DF, BID
     Dates: start: 201810
  2. COMBODART [Suspect]
     Active Substance: DUTASTERIDE\TAMSULOSIN
     Indication: PRODUCT USED FOR UNKNOWN INDICATION
     Dosage: UNK

REACTIONS (7)
  - Incorrect dose administered [Unknown]
  - Prostatomegaly [Unknown]
  - Cardiac disorder [Unknown]
  - Bladder catheterisation [Unknown]
  - Product prescribing issue [Unknown]
  - Urinary retention [Recovering/Resolving]
  - Bedridden [Recovering/Resolving]
